FAERS Safety Report 8593334-0 (Version None)
Quarter: 2012Q3

REPORT INFORMATION
  Report Type: 
  Country: None (occurrence: None)
  Receive Date: 20120814
  Receipt Date: 20120806
  Transmission Date: 20120928
  Serious: Yes (Disabling)
  Sender: FDA-Public Use
  Company Number: US-MUTUAL PHARMACEUTICAL COMPANY, INC.-MTCD20120265

PATIENT
  Sex: Male

DRUGS (4)
  1. REGLAN [Suspect]
     Indication: ABDOMINAL DISTENSION
     Route: 048
  2. METOCLOPRAMIDE [Suspect]
     Indication: DYSPEPSIA
  3. REGLAN [Suspect]
     Indication: DYSPEPSIA
  4. METOCLOPRAMIDE [Suspect]
     Indication: ABDOMINAL DISTENSION
     Route: 048

REACTIONS (4)
  - TARDIVE DYSKINESIA [None]
  - DYSTONIA [None]
  - EXTRAPYRAMIDAL DISORDER [None]
  - UNEVALUABLE EVENT [None]
